FAERS Safety Report 10241950 (Version 2)
Quarter: 2014Q3

REPORT INFORMATION
  Report Type: Spontaneous
  Country: US (occurrence: US)
  Receive Date: 20140617
  Receipt Date: 20140703
  Transmission Date: 20150326
  Serious: Yes (Death, Disabling, Other)
  Sender: FDA-Public Use
  Company Number: US-ASTELLAS-2014US006876

PATIENT
  Age: 63 Year
  Sex: Male

DRUGS (6)
  1. TARCEVA [Suspect]
     Active Substance: ERLOTINIB HYDROCHLORIDE
     Indication: NON-SMALL CELL LUNG CANCER
     Dosage: 150 UNIT NOT REPORTED, UNKNOWN FREQ.
     Route: 048
     Dates: start: 20140424
  2. COUMADIN [Concomitant]
     Active Substance: WARFARIN SODIUM
     Indication: DEEP VEIN THROMBOSIS
     Dosage: 5 VARIABLE, ONCE DAILY
     Route: 048
  3. CITALOPRAM [Concomitant]
     Active Substance: CITALOPRAM HYDROBROMIDE
     Indication: BIPOLAR DISORDER
     Dosage: 20 UNIT NOT REPORTED, ONCE DAILY
     Route: 048
  4. RISPERDAL [Concomitant]
     Active Substance: RISPERIDONE
     Indication: PRODUCT USED FOR UNKNOWN INDICATION
     Dosage: UNK UNK, UNKNOWN FREQ.
     Route: 065
  5. TARCEVA [Suspect]
     Active Substance: ERLOTINIB HYDROCHLORIDE
     Dosage: 150 UNIT NOT REPORTED, ONCE DAILY
     Route: 048
     Dates: start: 20140524, end: 20140604
  6. LISINOPRIL. [Concomitant]
     Active Substance: LISINOPRIL
     Indication: HYPERTENSION
     Dosage: 20 UNIT NOT REPORTED, ONCE DAILY
     Route: 048

REACTIONS (9)
  - Diplopia [Unknown]
  - Brain stem infarction [Not Recovered/Not Resolved]
  - Central nervous system necrosis [Unknown]
  - Death [Fatal]
  - Cerebral infarction [Not Recovered/Not Resolved]
  - Skin exfoliation [Unknown]
  - Muscular weakness [Unknown]
  - Weight decreased [Unknown]
  - Cerebellar infarction [Not Recovered/Not Resolved]

NARRATIVE: CASE EVENT DATE: 20140627
